FAERS Safety Report 5513002-9 (Version None)
Quarter: 2007Q4

REPORT INFORMATION
  Report Type: 
  Country: None (occurrence: None)
  Receive Date: 20071112
  Receipt Date: 20071107
  Transmission Date: 20080405
  Serious: Yes (Life-Threatening)
  Sender: FDA-Public Use
  Company Number: JP-BRISTOL-MYERS SQUIBB COMPANY-13975032

PATIENT
  Age: 8 Decade
  Sex: Male

DRUGS (3)
  1. PARAPLATIN [Suspect]
     Indication: PROSTATE CANCER
     Route: 041
  2. TAXOTERE [Concomitant]
     Route: 042
  3. ESTRAMUSTINE PHOSPHATE SODIUM [Concomitant]
     Route: 048

REACTIONS (1)
  - DISSEMINATED INTRAVASCULAR COAGULATION [None]
